FAERS Safety Report 4831944-4 (Version None)
Quarter: 2005Q4

REPORT INFORMATION
  Report Type: 
  Country: None (occurrence: None)
  Receive Date: 20051116
  Receipt Date: 20051102
  Transmission Date: 20060501
  Serious: Yes (Death)
  Sender: FDA-Public Use
  Company Number: S05-UKI-04974-01

PATIENT
  Age: 67 Year
  Sex: Female

DRUGS (4)
  1. ESCITALOPRAM OXALATE [Suspect]
     Dosage: 10 MG QD PO
     Route: 048
  2. FLUANXOL MITE ^LUNDBECK^ (FLUPENTIXOL DIHYDROCHLORIDE) [Suspect]
     Dosage: 1 TABLET QD PO
     Route: 048
  3. ZOPICLONE [Suspect]
     Dosage: 7.5 MG QD
  4. QUININE BISULFATE [Suspect]

REACTIONS (3)
  - COMPLETED SUICIDE [None]
  - INJURY ASPHYXIATION [None]
  - INTENTIONAL SELF-INJURY [None]
